FAERS Safety Report 8183186-5 (Version None)
Quarter: 2012Q1

REPORT INFORMATION
  Report Type: 
  Country: None (occurrence: None)
  Receive Date: 20120305
  Receipt Date: 20120226
  Transmission Date: 20120608
  Serious: Yes (Other)
  Sender: FDA-Public Use
  Company Number: US-SANOFI-AVENTIS-2012SA011796

PATIENT
  Age: 51 Year
  Sex: Female

DRUGS (6)
  1. ALLEGRA [Suspect]
  2. ALLEGRA [Suspect]
     Route: 048
  3. ALLEGRA [Suspect]
  4. ALLEGRA [Suspect]
  5. ALLEGRA [Suspect]
     Route: 048
  6. ALLEGRA [Suspect]

REACTIONS (5)
  - PRURITUS [None]
  - NEOPLASM [None]
  - DRUG INEFFECTIVE [None]
  - PRODUCT QUALITY ISSUE [None]
  - THYROID CANCER [None]
